FAERS Safety Report 6568552-3 (Version None)
Quarter: 2010Q1

REPORT INFORMATION
  Report Type: 
  Country: None (occurrence: None)
  Receive Date: 20100128
  Receipt Date: 20100113
  Transmission Date: 20100710
  Serious: Yes (Hospitalization)
  Sender: FDA-Public Use
  Company Number: 2003EU006560

PATIENT
  Age: 54 Year
  Sex: Male
  Weight: 70 kg

DRUGS (3)
  1. TACROLIMUS [Suspect]
     Dosage: 0.075 MG/KG, ORAL
     Route: 048
     Dates: start: 20010518
  2. METHYLPREDNISOLONE [Concomitant]
  3. DACLIZUMAB (DACLIZUMAB) [Concomitant]

REACTIONS (5)
  - ATAXIA [None]
  - DYSARTHRIA [None]
  - DYSPHAGIA [None]
  - NEUROTOXICITY [None]
  - OSMOTIC DEMYELINATION SYNDROME [None]
